FAERS Safety Report 19056038 (Version 2)
Quarter: 2021Q1

REPORT INFORMATION
  Report Type: Spontaneous
  Country: US (occurrence: US)
  Receive Date: 20210324
  Receipt Date: 20210331
  Transmission Date: 20210420
  Serious: Yes (Hospitalization, Other)
  Sender: FDA-Public Use
  Company Number: US-TAKEDA-2021TUS017568

PATIENT
  Age: 70 Year
  Sex: Female
  Weight: 69.39 kg

DRUGS (13)
  1. GATTEX [Suspect]
     Active Substance: TEDUGLUTIDE\WATER
     Dosage: 1.7 MILLIGRAM, QD
     Route: 058
     Dates: start: 20200224
  2. GATTEX [Suspect]
     Active Substance: TEDUGLUTIDE\WATER
     Indication: SHORT-BOWEL SYNDROME
     Dosage: 1.7 MILLIGRAM, QD
     Route: 050
     Dates: start: 20200224
  3. GATTEX [Suspect]
     Active Substance: TEDUGLUTIDE\WATER
     Dosage: 1.7 MILLIGRAM, QD
     Route: 058
     Dates: start: 20200224
  4. GATTEX [Suspect]
     Active Substance: TEDUGLUTIDE\WATER
     Indication: SHORT-BOWEL SYNDROME
     Dosage: 1.7 MILLIGRAM, QD
     Route: 050
     Dates: start: 20200224
  5. GATTEX [Suspect]
     Active Substance: TEDUGLUTIDE\WATER
     Indication: SHORT-BOWEL SYNDROME
     Dosage: 1.7 MILLIGRAM, QD
     Route: 050
     Dates: start: 20200224
  6. LEVOTHYROXINE. [Concomitant]
     Active Substance: LEVOTHYROXINE
     Indication: HYPOTHYROIDISM
     Dosage: 50 MILLIGRAM, QD
     Route: 065
  7. CODEINE [Concomitant]
     Active Substance: CODEINE
     Indication: CROHN^S DISEASE
     Dosage: 30 MILLIGRAM, QID
     Route: 065
     Dates: start: 2018
  8. CODEINE [Concomitant]
     Active Substance: CODEINE
     Indication: SHORT-BOWEL SYNDROME
  9. GATTEX [Suspect]
     Active Substance: TEDUGLUTIDE\WATER
     Indication: SHORT-BOWEL SYNDROME
     Dosage: 1.7 MILLIGRAM, QD
     Route: 050
     Dates: start: 20200224
  10. GATTEX [Suspect]
     Active Substance: TEDUGLUTIDE\WATER
     Dosage: 1.7 MILLIGRAM, QD
     Route: 058
     Dates: start: 20200224
  11. LOMOTIL [LOPERAMIDE HYDROCHLORIDE] [Concomitant]
     Active Substance: LOPERAMIDE HYDROCHLORIDE
     Indication: DIARRHOEA
     Dosage: 2.5 MILLIGRAM
     Route: 065
     Dates: start: 2013
  12. KLONOPIN [Concomitant]
     Active Substance: CLONAZEPAM
     Indication: ANXIETY
     Dosage: 1 MILLIGRAM
     Route: 065
     Dates: start: 2016
  13. GATTEX [Suspect]
     Active Substance: TEDUGLUTIDE\WATER
     Dosage: 1.7 MILLIGRAM, QD
     Route: 058
     Dates: start: 20200224

REACTIONS (2)
  - Pneumonia [Recovered/Resolved]
  - Hypertension [Recovering/Resolving]

NARRATIVE: CASE EVENT DATE: 202006
